FAERS Safety Report 4890440-9 (Version None)
Quarter: 2005Q4

REPORT INFORMATION
  Report Type: 
  Country: None (occurrence: None)
  Receive Date: 20051216
  Receipt Date: 20051006
  Transmission Date: 20060501
  Serious: No
  Sender: FDA-Public Use
  Company Number: BDI-007630

PATIENT
  Age: 3 Year
  Sex: Female
  Weight: 15.5 kg

DRUGS (3)
  1. MULTIHANCE [Suspect]
     Indication: NUCLEAR MAGNETIC RESONANCE IMAGING
     Dosage: 0.6 ML ONCE IV
     Route: 042
     Dates: start: 20050929, end: 20050929
  2. MULTIHANCE [Suspect]
     Indication: PRECOCIOUS PUBERTY
     Dosage: 0.6 ML ONCE IV
     Route: 042
     Dates: start: 20050929, end: 20050929
  3. SEDATIVE [Concomitant]

REACTIONS (1)
  - VOMITING [None]
